FAERS Safety Report 5789052-4 (Version None)
Quarter: 2008Q2

REPORT INFORMATION
  Report Type: 
  Country: None (occurrence: None)
  Receive Date: 20080626
  Receipt Date: 20080619
  Transmission Date: 20081010
  Serious: Yes (Hospitalization)
  Sender: FDA-Public Use
  Company Number: B0525984A

PATIENT
  Age: 67 Year
  Sex: Female

DRUGS (7)
  1. AUGMENTIN '125' [Suspect]
     Dosage: 3G PER DAY
     Route: 048
     Dates: start: 20080507, end: 20080510
  2. PREVISCAN [Suspect]
     Indication: DRUG USE FOR UNKNOWN INDICATION
     Dosage: 30MG PER DAY
     Route: 048
  3. CORDARONE [Suspect]
     Indication: DRUG USE FOR UNKNOWN INDICATION
     Route: 065
     Dates: start: 20080414
  4. PERINDOPRIL ERBUMINE [Concomitant]
     Indication: DRUG USE FOR UNKNOWN INDICATION
     Dosage: 1TAB PER DAY
     Route: 048
  5. VITAMINE B12 [Concomitant]
     Dosage: 3MG WEEKLY
     Route: 048
  6. LASIX [Concomitant]
     Dosage: .5TAB PER DAY
     Route: 048
     Dates: start: 20080414
  7. BISOPROLOL FUMARATE [Concomitant]
     Indication: DRUG USE FOR UNKNOWN INDICATION
     Dosage: 1TAB ALTERNATE DAYS
     Route: 048
     Dates: start: 20080424

REACTIONS (8)
  - ANAEMIA [None]
  - CONJUNCTIVAL DISCOLOURATION [None]
  - DRUG INTERACTION [None]
  - EPISTAXIS [None]
  - HEART SOUNDS ABNORMAL [None]
  - INTERNATIONAL NORMALISED RATIO INCREASED [None]
  - PALLOR [None]
  - RALES [None]
